FAERS Safety Report 5193420-1 (Version None)
Quarter: 2006Q4

REPORT INFORMATION
  Report Type: 
  Country: None (occurrence: None)
  Receive Date: 20061228
  Receipt Date: 20060418
  Transmission Date: 20070319
  Serious: No
  Sender: FDA-Public Use
  Company Number: US-GLAXOSMITHKLINE-A0602173A

PATIENT
  Age: 61 Year
  Sex: Female

DRUGS (4)
  1. FLONASE [Suspect]
     Dosage: 1SPR TWICE PER DAY
     Route: 045
     Dates: start: 20060314, end: 20060418
  2. LAMICTAL [Concomitant]
  3. PRIMIDONE [Concomitant]
  4. FOSAMAX [Concomitant]

REACTIONS (2)
  - DIZZINESS [None]
  - EPISTAXIS [None]
